FAERS Safety Report 4474677-9 (Version None)
Quarter: 2004Q4

REPORT INFORMATION
  Report Type: 
  Country: None (occurrence: None)
  Receive Date: 20041012
  Receipt Date: 20040204
  Transmission Date: 20050328
  Serious: Yes (Life-Threatening, Other)
  Sender: FDA-Public Use
  Company Number: 2004IM000234

PATIENT
  Age: 52 Year
  Sex: Male

DRUGS (1)
  1. ADVAFERON (A643_INTERFERON ALFACON-1) [Suspect]
     Indication: HEPATITIS C
     Dosage: 18 MU;QD;SUBCUTANEOUS
     Route: 058
     Dates: start: 20020128, end: 20020325

REACTIONS (10)
  - DECREASED APPETITE [None]
  - DEPRESSED MOOD [None]
  - HAEMOGLOBIN DECREASED [None]
  - HALLUCINATION, AUDITORY [None]
  - HEADACHE [None]
  - INSOMNIA [None]
  - PYREXIA [None]
  - RENAL IMPAIRMENT [None]
  - SUICIDAL IDEATION [None]
  - WHITE BLOOD CELL COUNT DECREASED [None]
